FAERS Safety Report 4543020-9 (Version None)
Quarter: 2005Q1

REPORT INFORMATION
  Report Type: 
  Country: None (occurrence: None)
  Receive Date: 20050103
  Receipt Date: 20041222
  Transmission Date: 20050727
  Serious: Yes (Life-Threatening, Hospitalization, Other)
  Sender: FDA-Public Use
  Company Number: CA-JNJFOC-20041007136

PATIENT
  Sex: Female
  Weight: 73 kg

DRUGS (10)
  1. REMICADE [Suspect]
     Route: 042
  2. REMICADE [Suspect]
     Route: 042
  3. REMICADE [Suspect]
     Indication: CROHN'S DISEASE
     Route: 042
  4. METHOTREXATE [Concomitant]
     Indication: CROHN'S DISEASE
     Route: 058
  5. PREDNISONE [Concomitant]
     Indication: CROHN'S DISEASE
  6. NARCOTIC ANALGESICS [Concomitant]
     Indication: CROHN'S DISEASE
  7. SURGAM [Concomitant]
  8. PREMARIN [Concomitant]
  9. HYDROCHLOROTHIAZIDE [Concomitant]
  10. ASPIRIN [Concomitant]

REACTIONS (6)
  - ANAL FISTULA [None]
  - ARTHRALGIA [None]
  - BACTERIAL INFECTION [None]
  - BRAIN ABSCESS [None]
  - DEEP VEIN THROMBOSIS [None]
  - TOOTH ABSCESS [None]
